FAERS Safety Report 24136771 (Version 1)
Quarter: 2024Q3

REPORT INFORMATION
  Report Type: Spontaneous
  Country: US (occurrence: None)
  Receive Date: 20240725
  Receipt Date: 20240725
  Transmission Date: 20241017
  Serious: Yes (Hospitalization)
  Sender: Public
  Company Number: None

PATIENT
  Age: 76 Year
  Sex: Male
  Weight: 135.3 kg

DRUGS (7)
  1. DARATUMUMAB\HYALURONIDASE-FIHJ [Suspect]
     Active Substance: DARATUMUMAB\HYALURONIDASE-FIHJ
     Dates: start: 20240703, end: 20240710
  2. DEXAMETHASONE [Concomitant]
     Active Substance: DEXAMETHASONE
  3. LENALIDOMIDE [Concomitant]
     Active Substance: LENALIDOMIDE
  4. ALFUZOSIN [Concomitant]
     Active Substance: ALFUZOSIN
  5. DOFETILIDE [Concomitant]
     Active Substance: DOFETILIDE
  6. LOSARTAN [Concomitant]
     Active Substance: LOSARTAN
  7. NIFEDIPINE [Concomitant]
     Active Substance: NIFEDIPINE

REACTIONS (7)
  - Atrial fibrillation [None]
  - Dizziness [None]
  - Confusional state [None]
  - Hypotension [None]
  - Blood lactic acid increased [None]
  - Troponin increased [None]
  - Cardiac dysfunction [None]

NARRATIVE: CASE EVENT DATE: 20240715
